FAERS Safety Report 7203163-8 (Version None)
Quarter: 2010Q4

REPORT INFORMATION
  Report Type: 
  Country: None (occurrence: None)
  Receive Date: 20101229
  Receipt Date: 20101220
  Transmission Date: 20110411
  Serious: Yes (Other)
  Sender: FDA-Public Use
  Company Number: NL-AMGEN-NLDSP2010005384

PATIENT

DRUGS (3)
  1. ENBREL [Suspect]
     Indication: PSORIASIS
     Dosage: 50 MG, 2X/WEEK
     Dates: start: 20100710, end: 20100801
  2. METFORMIN HYDROCHLORIDE [Concomitant]
  3. LORMETAZEPAM [Concomitant]

REACTIONS (14)
  - CYSTITIS [None]
  - DYSPNOEA [None]
  - DYSURIA [None]
  - FATIGUE [None]
  - INCREASED UPPER AIRWAY SECRETION [None]
  - INFECTION SUSCEPTIBILITY INCREASED [None]
  - INJECTION SITE ERYTHEMA [None]
  - NASOPHARYNGITIS [None]
  - OROPHARYNGEAL PAIN [None]
  - OSTEITIS [None]
  - POLLAKIURIA [None]
  - PRURITUS GENERALISED [None]
  - PSORIASIS [None]
  - WEIGHT INCREASED [None]
